FAERS Safety Report 5991959-X (Version None)
Quarter: 2008Q4

REPORT INFORMATION
  Report Type: 
  Country: None (occurrence: None)
  Receive Date: 20081211
  Receipt Date: 20081209
  Transmission Date: 20090506
  Serious: Yes (Other)
  Sender: FDA-Public Use
  Company Number: TN-ROXANE LABORATORIES, INC.-2008-RO-00393RO

PATIENT
  Age: 81 Year
  Sex: Female

DRUGS (6)
  1. LIDOCAINE [Suspect]
     Indication: LOCAL ANAESTHESIA
     Dates: start: 20070101
  2. EPINEPHRINE [Suspect]
     Indication: LOCAL ANAESTHESIA
     Dates: start: 20070101
  3. IRON [Concomitant]
  4. PENTOXIFYLLINE [Concomitant]
  5. METHYLDOPA [Concomitant]
  6. FUROSEMIDE [Concomitant]

REACTIONS (5)
  - BLINDNESS [None]
  - DISEASE PROGRESSION [None]
  - EYE MOVEMENT DISORDER [None]
  - ISCHAEMIA [None]
  - NECROSIS [None]
